FAERS Safety Report 6250535-4 (Version None)
Quarter: 2009Q2

REPORT INFORMATION
  Report Type: 
  Country: None (occurrence: None)
  Receive Date: 20090630
  Receipt Date: 20090623
  Transmission Date: 20091009
  Serious: Yes (Other)
  Sender: FDA-Public Use
  Company Number: SE-JNJFOC-20090608037

PATIENT
  Age: 46 Year
  Sex: Male

DRUGS (15)
  1. CONCERTA [Suspect]
     Route: 048
  2. CONCERTA [Suspect]
     Indication: ATTENTION DEFICIT/HYPERACTIVITY DISORDER
     Dosage: (36MG + 27MG)
     Route: 048
  3. ABILIFY [Concomitant]
     Route: 065
  4. METOPROLOL SUCCINATE [Concomitant]
     Route: 065
  5. IRBESARTAN [Concomitant]
     Route: 065
  6. TEGRETOL [Concomitant]
     Route: 065
  7. LYRICA [Concomitant]
     Route: 065
  8. PROPAVAN [Concomitant]
     Route: 065
  9. FLUOXETINE [Concomitant]
     Route: 065
  10. MIANSERIN [Concomitant]
     Route: 065
  11. CYMBALTA [Concomitant]
     Route: 065
  12. LOVAZA [Concomitant]
     Route: 065
  13. SELOKENZOC [Concomitant]
     Route: 065
  14. MODAFINIL [Concomitant]
     Route: 065
  15. XYLOPROCT [Concomitant]
     Route: 065

REACTIONS (3)
  - AGGRESSION [None]
  - CARDIAC FIBRILLATION [None]
  - FEELING ABNORMAL [None]
